FAERS Safety Report 24296120 (Version 1)
Quarter: 2024Q3

REPORT INFORMATION
  Report Type: Spontaneous
  Country: CN (occurrence: CN)
  Receive Date: 20240909
  Receipt Date: 20240909
  Transmission Date: 20241017
  Serious: Yes (Hospitalization)
  Sender: NOVARTIS
  Company Number: CN-002147023-NVSC2024CN179332

PATIENT
  Age: 56 Year
  Sex: Female

DRUGS (1)
  1. CARBAMAZEPINE [Suspect]
     Active Substance: CARBAMAZEPINE
     Indication: Headache
     Dosage: 0.5 DOSAGE FORM, BID
     Route: 048
     Dates: start: 20240125, end: 20240130

REACTIONS (5)
  - Toxic epidermal necrolysis [Unknown]
  - Oropharyngeal discomfort [Unknown]
  - Herpes zoster disseminated [Unknown]
  - Off label use [Unknown]
  - Wrong technique in product usage process [Unknown]

NARRATIVE: CASE EVENT DATE: 20240125
